FAERS Safety Report 9420753 (Version 1)
Quarter: 2013Q3

REPORT INFORMATION
  Report Type: Report from Study
  Country: US (occurrence: US)
  Receive Date: 20130725
  Receipt Date: 20130725
  Transmission Date: 20140515
  Serious: No
  Sender: FDA-Public Use
  Company Number: US-ABBOTT-13P-163-1095611-00

PATIENT
  Sex: Female

DRUGS (1)
  1. SYNTHROID [Suspect]
     Indication: PRODUCT USED FOR UNKNOWN INDICATION
     Dosage: 112.5 MCG (4.5 TABLETS) DAILY

REACTIONS (4)
  - Fatigue [Unknown]
  - Feeling cold [Unknown]
  - Off label use [Unknown]
  - Thyroid disorder [Unknown]
